FAERS Safety Report 4518067-9 (Version None)
Quarter: 2004Q4

REPORT INFORMATION
  Report Type: 
  Country: None (occurrence: None)
  Receive Date: 20041203
  Receipt Date: 20040816
  Transmission Date: 20050328
  Serious: Yes (Other)
  Sender: FDA-Public Use
  Company Number: GB-GLAXOSMITHKLINE-B0343218A

PATIENT
  Sex: Female

DRUGS (2)
  1. REQUIP [Suspect]
     Indication: PARKINSON'S DISEASE
     Dosage: 18MG UNKNOWN
     Route: 065
     Dates: start: 20010501
  2. NO CONCURRENT MEDICATION [Concomitant]

REACTIONS (2)
  - GASTRITIS [None]
  - IRON DEFICIENCY ANAEMIA [None]
